FAERS Safety Report 18886934 (Version 1)
Quarter: 2021Q1

REPORT INFORMATION
  Report Type: Spontaneous
  Country: CA (occurrence: CA)
  Receive Date: 20210212
  Receipt Date: 20210212
  Transmission Date: 20210420
  Serious: Yes (Other)
  Sender: FDA-Public Use
  Company Number: CA-ROCHE-2768444

PATIENT
  Sex: Female
  Weight: 69 kg

DRUGS (1)
  1. ACTEMRA [Suspect]
     Active Substance: TOCILIZUMAB
     Indication: RHEUMATOID ARTHRITIS
     Dosage: ON 13/JAN/2021, SHE HAD HER LAST INFUSION.
     Route: 042

REACTIONS (2)
  - Glaucoma [Recovering/Resolving]
  - Blood cholesterol increased [Recovering/Resolving]
